FAERS Safety Report 8257368-8 (Version None)
Quarter: 2012Q1

REPORT INFORMATION
  Report Type: 
  Country: None (occurrence: None)
  Receive Date: 20120330
  Receipt Date: 20120330
  Transmission Date: 20120608
  Serious: Yes (Disabling, Other)
  Sender: FDA-Public Use
  Company Number: None

PATIENT
  Sex: Female
  Weight: 56.6996 kg

DRUGS (1)
  1. PERIOGARD [Suspect]
     Indication: TOOTH DISORDER
     Dosage: FLUSH X2
     Dates: start: 20110525

REACTIONS (8)
  - MALAISE [None]
  - ABSCESS [None]
  - SWELLING FACE [None]
  - APHAGIA [None]
  - COUGH [None]
  - TONGUE DISCOLOURATION [None]
  - PAIN [None]
  - WEIGHT DECREASED [None]
